APPROVED DRUG PRODUCT: SUGAMMADEX SODIUM
Active Ingredient: SUGAMMADEX SODIUM
Strength: EQ 500MG BASE/5ML (EQ 100MG BASE/ML)
Dosage Form/Route: SOLUTION;INTRAVENOUS
Application: A214337 | Product #002 | TE Code: AP
Applicant: ASPIRO PHARMA LTD
Approved: Jun 9, 2023 | RLD: No | RS: No | Type: RX